FAERS Safety Report 8553784-5 (Version None)
Quarter: 2012Q3

REPORT INFORMATION
  Report Type: 
  Country: None (occurrence: None)
  Receive Date: 20120731
  Receipt Date: 20120730
  Transmission Date: 20120928
  Serious: Yes (Life-Threatening)
  Sender: FDA-Public Use
  Company Number: RU-GLAXOSMITHKLINE-Z0016442A

PATIENT
  Sex: Female
  Weight: 89 kg

DRUGS (2)
  1. PAZOPANIB [Suspect]
     Indication: RENAL CELL CARCINOMA
     Route: 048
     Dates: start: 20120605
  2. FORMALIN [Concomitant]
     Indication: ANGIOEDEMA
     Route: 055
     Dates: start: 20120722, end: 20120722

REACTIONS (1)
  - ANGIOEDEMA [None]
